FAERS Safety Report 9572274 (Version 1)
Quarter: 2013Q3

REPORT INFORMATION
  Report Type: Spontaneous
  Country: US (occurrence: None)
  Receive Date: 20130930
  Receipt Date: 20130930
  Transmission Date: 20140515
  Serious: Yes (Hospitalization)
  Sender: FDA-Public Use
  Company Number: None

PATIENT
  Age: 44 Year
  Sex: Male
  Weight: 72 kg

DRUGS (6)
  1. CYCLOPHOSPHAMIDE [Suspect]
     Dates: end: 20130812
  2. DOXORUBICIN HYDROCHLORIDE [Suspect]
     Dates: end: 20130811
  3. ETOPOSIDE (VP-16) [Suspect]
     Dates: end: 20130811
  4. PREDNISONE [Suspect]
     Dates: end: 20130812
  5. RITUXIMAB [Suspect]
     Dates: end: 20130808
  6. VINCRISTINE SULFATE [Suspect]
     Dates: end: 20130811

REACTIONS (1)
  - Neutrophil count decreased [None]
